FAERS Safety Report 18652116 (Version 4)
Quarter: 2022Q4

REPORT INFORMATION
  Report Type: Spontaneous
  Country: US (occurrence: US)
  Receive Date: 20201222
  Receipt Date: 20221208
  Transmission Date: 20230113
  Serious: Yes (Hospitalization, Other)
  Sender: FDA-Public Use
  Company Number: US-MLMSERVICE-20201209-2614374-1

PATIENT
  Age: 46 Year
  Sex: Female

DRUGS (8)
  1. METHYLPREDNISOLONE [Suspect]
     Active Substance: METHYLPREDNISOLONE
     Indication: Transplant rejection
     Dosage: UNK
  2. PREDNISONE [Suspect]
     Active Substance: PREDNISONE
     Indication: Immunosuppressant drug therapy
     Dosage: UNK
  3. BELATACEPT [Suspect]
     Active Substance: BELATACEPT
     Indication: Immunosuppressant drug therapy
     Dosage: UNK
  4. MYCOPHENOLATE MOFETIL [Suspect]
     Active Substance: MYCOPHENOLATE MOFETIL
     Indication: Immunosuppressant drug therapy
     Dosage: UNK
  5. THYMOGLOBULIN [Suspect]
     Active Substance: LAPINE T-LYMPHOCYTE IMMUNE GLOBULIN
     Indication: Transplant rejection
     Dosage: 1.5 MG/KG(9 DOSAGE FORM,5 DOSES)
  6. ECULIZUMAB [Suspect]
     Active Substance: ECULIZUMAB
     Indication: Transplant rejection
     Dosage: UNK
  7. IMMUNOGLOBULIN [Concomitant]
     Indication: Transplant rejection
     Dosage: UNK
     Route: 042
  8. VALGANCICLOVIR [Concomitant]
     Active Substance: VALGANCICLOVIR
     Indication: Prophylaxis
     Dosage: 900 MG, 1X/DAY (900 MG ONCE A DAY, DOSE-ADJUSTED BASED ON RENAL FUNCTION)
     Route: 048

REACTIONS (4)
  - Cytomegalovirus gastrointestinal infection [Recovering/Resolving]
  - Polyomavirus viraemia [Recovering/Resolving]
  - Cytomegalovirus infection [Recovering/Resolving]
  - Cervicitis [Recovering/Resolving]
